FAERS Safety Report 5232893-2 (Version None)
Quarter: 2007Q1

REPORT INFORMATION
  Report Type: 
  Country: None (occurrence: None)
  Receive Date: 20070207
  Receipt Date: 20070129
  Transmission Date: 20070707
  Serious: Yes (Hospitalization)
  Sender: FDA-Public Use
  Company Number: BR-ELI_LILLY_AND_COMPANY-BR200702000165

PATIENT
  Age: 62 Year
  Sex: Female
  Weight: 64 kg

DRUGS (7)
  1. FORTEO [Suspect]
     Indication: OSTEOPOROSIS
     Dosage: 20 UG, UNKNOWN
     Route: 058
     Dates: start: 20050702
  2. TIMOPTIC [Concomitant]
     Indication: GLAUCOMA
     Dosage: UNK, 2/D
     Route: 061
  3. PURAN T4 [Concomitant]
     Indication: HYPOTHYROIDISM
     Dosage: 70 UG, DAILY (1/D)
     Route: 048
  4. CLORANA [Concomitant]
     Indication: HYPERTENSION
     Dosage: 50 MG, 2/D
     Route: 048
  5. OMEPRAZOLE [Concomitant]
     Indication: GASTRITIS
     Dosage: 20 MG, DAILY (1/D)
     Route: 048
  6. SOMALGIN [Concomitant]
     Dosage: 325 MG, DAILY (1/D)
     Route: 048
  7. RIVOTRIL [Concomitant]
     Indication: SLEEP DISORDER THERAPY
     Dosage: 2 MG, DAILY (1/D)
     Route: 048

REACTIONS (2)
  - CHOLELITHIASIS [None]
  - PANCREATITIS [None]
